FAERS Safety Report 23780328 (Version 1)
Quarter: 2024Q2

REPORT INFORMATION
  Report Type: Report from Study
  Country: US (occurrence: US)
  Receive Date: 20240424
  Receipt Date: 20240424
  Transmission Date: 20240716
  Serious: Yes (Hospitalization, Other)
  Sender: FDA-Public Use
  Company Number: US-ABBVIE-5683839

PATIENT
  Sex: Female

DRUGS (2)
  1. VENCLEXTA [Suspect]
     Active Substance: VENETOCLAX
     Indication: Agranulocytosis
     Dosage: TAKE ONE TABLET BY MOUTH ONCE DAILY WITH FOOD AND FULL GLASS OF WATER?FORM STRENGTH: 100 MILLIGRAM
     Route: 048
  2. VENCLEXTA [Suspect]
     Active Substance: VENETOCLAX
     Indication: Agranulocytosis
     Dosage: TAKE ONE TABLET BY MOUTH ONCE DAILY WITH FOOD AND FULL GLASS OF WATER?FORM STRENGTH: 100 MILLIGRAM
     Route: 048
     Dates: end: 202403

REACTIONS (3)
  - Pneumonia [Not Recovered/Not Resolved]
  - Fall [Recovering/Resolving]
  - Rehabilitation therapy [Unknown]
